FAERS Safety Report 11359282 (Version 1)
Quarter: 2015Q3

REPORT INFORMATION
  Report Type: Other
  Country: US (occurrence: US)
  Receive Date: 20150807
  Receipt Date: 20150807
  Transmission Date: 20151125
  Serious: Yes (Other)
  Sender: FDA-Public Use
  Company Number: US-SHIRE-US201509383

PATIENT
  Sex: Female

DRUGS (1)
  1. VYVANSE [Suspect]
     Active Substance: LISDEXAMFETAMINE DIMESYLATE
     Indication: PRODUCT USED FOR UNKNOWN INDICATION
     Dosage: 50 MG, UNKNOWN
     Route: 048
     Dates: end: 20150720

REACTIONS (1)
  - Drug withdrawal syndrome [Unknown]

NARRATIVE: CASE EVENT DATE: 201507
